FAERS Safety Report 5080707-6 (Version None)
Quarter: 2006Q3

REPORT INFORMATION
  Report Type: 
  Country: None (occurrence: None)
  Receive Date: 20060809
  Receipt Date: 20060724
  Transmission Date: 20061208
  Serious: Yes (Other)
  Sender: FDA-Public Use
  Company Number: US188499

PATIENT
  Age: 36 Year
  Sex: Male

DRUGS (2)
  1. ENBREL [Suspect]
     Indication: ANKYLOSING SPONDYLITIS
     Dosage: 25 MG, 2 IN 1 WEEKS, SC
     Route: 058
  2. REMICADE [Suspect]
     Indication: ANKYLOSING SPONDYLITIS
     Dosage: 5 MG/KG, 1 IN 1 MONTHS, IV
     Route: 042

REACTIONS (5)
  - ANTINEUTROPHIL CYTOPLASMIC ANTIBODY POSITIVE [None]
  - IRIDOCYCLITIS [None]
  - IRIS ADHESIONS [None]
  - MACULAR OEDEMA [None]
  - POSTERIOR SEGMENT OF EYE ANOMALY [None]
